FAERS Safety Report 21393963 (Version 1)
Quarter: 2022Q3

REPORT INFORMATION
  Report Type: Spontaneous
  Country: ES (occurrence: ES)
  Receive Date: 20220930
  Receipt Date: 20220930
  Transmission Date: 20221027
  Serious: Yes (Other)
  Sender: FDA-Public Use
  Company Number: None

PATIENT
  Age: 50 Year
  Sex: Female

DRUGS (5)
  1. AIMOVIG [Suspect]
     Active Substance: ERENUMAB-AOOE
     Indication: Migraine
     Dosage: 140 MILLIGRAM (1 PRE-FILLED PEN OF 1 ML)
     Route: 058
     Dates: start: 20220617, end: 20220617
  2. Antalgin [Concomitant]
     Indication: Pain
     Dosage: 1.1 GRAM, QD  (40 TABLETS)
     Route: 048
     Dates: start: 201706
  3. FAMOTIDINA [Concomitant]
     Indication: Prophylaxis against gastrointestinal ulcer
     Dosage: 20 MILLIGRAM, QD
     Route: 048
     Dates: start: 20210713
  4. LEVOTHYROXINE SODIUM [Concomitant]
     Active Substance: LEVOTHYROXINE SODIUM
     Indication: Hypothyroidism
     Dosage: 75 MICROGRAM, QD (100 TABLETS)
     Route: 048
     Dates: start: 202006
  5. CALCIFEDIOL [Concomitant]
     Active Substance: CALCIFEDIOL
     Indication: Vitamin D deficiency
     Dosage: 0.27 MILLIGRAM, QMO (PVC/PVDC-ALUMINUM BLISTER)
     Route: 048
     Dates: start: 202112

REACTIONS (1)
  - Paraesthesia [Recovered/Resolved]

NARRATIVE: CASE EVENT DATE: 20220617
